FAERS Safety Report 26031432 (Version 2)
Quarter: 2025Q4

REPORT INFORMATION
  Report Type: Spontaneous
  Country: EU (occurrence: EU)
  Receive Date: 20251112
  Receipt Date: 20251121
  Transmission Date: 20260117
  Serious: Yes (Disabling)
  Sender: IPSEN BIOPHARMACEUTICALS, INC.
  Company Number: None

PATIENT
  Age: 52 Year
  Sex: Female

DRUGS (8)
  1. BOTULINUM TOXIN TYPE A [Suspect]
     Active Substance: BOTULINUM TOXIN TYPE A
     Indication: Tension headache
     Dosage: 200 UNITS/4 ML NACL TOTAL 147.5 UNITS
     Dates: start: 20240506, end: 20240506
  2. BOTULINUM TOXIN TYPE A [Suspect]
     Active Substance: BOTULINUM TOXIN TYPE A
     Indication: Spondyloarthropathy
  3. BOTULINUM TOXIN TYPE A [Suspect]
     Active Substance: BOTULINUM TOXIN TYPE A
     Indication: Radiculopathy
  4. BOTULINUM TOXIN TYPE A [Suspect]
     Active Substance: BOTULINUM TOXIN TYPE A
     Indication: Migraine
  5. Indometin [Concomitant]
     Indication: Headache
     Dosage: 1 TABL 2-3 KERTAA P?IV?SS? / 1 TABLET 2-3 TIMES A DAY
     Route: 048
     Dates: start: 20240508, end: 20240508
  6. NORTRIPTYLINE HYDROCHLORIDE [Concomitant]
     Active Substance: NORTRIPTYLINE HYDROCHLORIDE
     Indication: Pain
     Dosage: 1 TABL ILTAISIN / 1 TABLET IN THE EVENING
     Route: 048
     Dates: start: 2015
  7. LYRICA [Concomitant]
     Active Substance: PREGABALIN
     Indication: Neuralgia
     Dosage: 1 TABL ILTAISIN / 1 TABLET IN THE EVENING
     Route: 048
     Dates: start: 2017
  8. IBUPROFEN [Concomitant]
     Active Substance: IBUPROFEN
     Indication: Pain
     Dosage: 1-2 TABL/PV? TARVITTAESSA  |  1-2 TABLETS/DAY IF NEEDED
     Route: 048
     Dates: start: 2015

REACTIONS (17)
  - Dyspnoea [Not Recovered/Not Resolved]
  - Musculoskeletal discomfort [Not Recovered/Not Resolved]
  - Feeling hot [Not Recovered/Not Resolved]
  - Malaise [Not Recovered/Not Resolved]
  - Asthenia [Not Recovered/Not Resolved]
  - Presyncope [Not Recovered/Not Resolved]
  - Tremor [Not Recovered/Not Resolved]
  - Physical disability [Not Recovered/Not Resolved]
  - Dysphonia [Not Recovered/Not Resolved]
  - Neurological symptom [Not Recovered/Not Resolved]
  - Diarrhoea [Not Recovered/Not Resolved]
  - Dry mouth [Not Recovered/Not Resolved]
  - Palpitations [Not Recovered/Not Resolved]
  - Laryngospasm [Not Recovered/Not Resolved]
  - Laryngeal dyskinesia [Not Recovered/Not Resolved]
  - Impaired work ability [Not Recovered/Not Resolved]
  - Off label use [Unknown]

NARRATIVE: CASE EVENT DATE: 20240508
